FAERS Safety Report 21337011 (Version 2)
Quarter: 2022Q3

REPORT INFORMATION
  Report Type: Spontaneous
  Country: US (occurrence: US)
  Receive Date: 20220915
  Receipt Date: 20220923
  Transmission Date: 20221027
  Serious: Yes (Life-Threatening)
  Sender: FDA-Public Use
  Company Number: US-drreddys-LIT/USA/22/0154444

PATIENT
  Age: 36 Year
  Sex: Male

DRUGS (5)
  1. THIAMINE HYDROCHLORIDE [Suspect]
     Active Substance: THIAMINE HYDROCHLORIDE
     Indication: Alcohol poisoning
  2. PYRIDOXINE HYDROCHLORIDE [Suspect]
     Active Substance: PYRIDOXINE HYDROCHLORIDE
     Indication: Alcohol poisoning
  3. SODIUM BICARBONATE [Suspect]
     Active Substance: SODIUM BICARBONATE
     Indication: Alcohol poisoning
  4. FOLIC ACID [Suspect]
     Active Substance: FOLIC ACID
     Indication: Alcohol poisoning
  5. FOMEPIZOLE [Suspect]
     Active Substance: FOMEPIZOLE
     Indication: Alcohol poisoning

REACTIONS (1)
  - Drug ineffective for unapproved indication [Unknown]
